FAERS Safety Report 8211785 (Version 2)
Quarter: 2012Q4

REPORT INFORMATION
  Report Type: 
  Country: US (occurrence: US)
  Receive Date: 20111029
  Receipt Date: 20121023
  Transmission Date: 20130627
  Serious: No
  Sender: FDA-Public Use
  Company Number: US-AMGEN-USASP2011006827

PATIENT
  Age: 55 Year
  Sex: Female

DRUGS (1)
  1. ENBREL [Suspect]
     Indication: PSORIASIS
     Dosage: 50 mg, 2 times/wk
     Dates: start: 20110106, end: 20110202

REACTIONS (3)
  - Rectal haemorrhage [Recovered/Resolved with Sequelae]
  - Abdominal pain [Recovered/Resolved]
  - Insomnia [Recovered/Resolved]
